FAERS Safety Report 24898283 (Version 6)
Quarter: 2025Q4

REPORT INFORMATION
  Report Type: Spontaneous
  Country: CA (occurrence: CA)
  Receive Date: 20250129
  Receipt Date: 20251111
  Transmission Date: 20260117
  Serious: Yes (Other)
  Sender: CELLTRION
  Company Number: CA-CELLTRION INC.-2024CA028195

PATIENT

DRUGS (7)
  1. STEQEYMA [Suspect]
     Active Substance: USTEKINUMAB-STBA
     Indication: Colitis ulcerative
     Dosage: 90 MG, EVERY 4 WEEKS/90.0 MILLIGRAM, 1 EVERY 4 WEEKS
     Route: 058
  2. STEQEYMA [Suspect]
     Active Substance: USTEKINUMAB-STBA
     Dosage: 90 MG, EVERY 8 WEEKS
     Route: 058
     Dates: start: 20241126
  3. STEQEYMA [Suspect]
     Active Substance: USTEKINUMAB-STBA
     Dosage: TREATMENT RECEIVED JANUARY 21
     Dates: start: 20250121
  4. STEQEYMA [Suspect]
     Active Substance: USTEKINUMAB-STBA
     Dosage: 90 MG, EVERY 4 WEEKS/90.0 MILLIGRAM, 1 EVERY 4 WEEKS
  5. STEQEYMA [Suspect]
     Active Substance: USTEKINUMAB-STBA
     Dosage: 90 MILLIGRAM
     Route: 058
  6. STEQEYMA [Suspect]
     Active Substance: USTEKINUMAB-STBA
     Dosage: UNK
  7. STEQEYMA [Suspect]
     Active Substance: USTEKINUMAB-STBA
     Dosage: 90 MG EVERY 4 WEEKS
     Route: 058
     Dates: start: 20240806

REACTIONS (6)
  - Haematochezia [Unknown]
  - Frequent bowel movements [Unknown]
  - Rectal tenesmus [Unknown]
  - Abnormal faeces [Unknown]
  - Proctitis [Unknown]
  - Off label use [Unknown]

NARRATIVE: CASE EVENT DATE: 20250121
